FAERS Safety Report 5934825-8 (Version None)
Quarter: 2008Q4

REPORT INFORMATION
  Report Type: 
  Country: None (occurrence: None)
  Receive Date: 20081029
  Receipt Date: 20081014
  Transmission Date: 20090506
  Serious: Yes (Hospitalization)
  Sender: FDA-Public Use
  Company Number: JP-GENENTECH-267269

PATIENT
  Sex: Female

DRUGS (16)
  1. BEVACIZUMAB [Suspect]
     Indication: BREAST CANCER
     Dosage: 565 MG, 2/WEEK
     Route: 042
     Dates: start: 20070927, end: 20080828
  2. PACLITAXEL [Suspect]
     Indication: BREAST CANCER
     Dosage: 140 MG, 1/WEEK
     Route: 042
     Dates: start: 20070927, end: 20080828
  3. RILMAZAFONE HYDROCHLORIDE [Concomitant]
     Indication: INSOMNIA
     Dosage: UNK
  4. GLIMEPIRIDE [Concomitant]
     Indication: DIABETES MELLITUS
     Dosage: UNK
  5. LOXOPROFEN SODIUM [Concomitant]
     Indication: PAIN
     Dosage: UNK
  6. REBAMIPIDE [Concomitant]
     Indication: DYSPEPSIA
     Dosage: UNK
     Dates: start: 20071002
  7. CARBOCISTEINE [Concomitant]
     Indication: COUGH
     Dosage: UNK
     Dates: start: 20080214
  8. BRIPLATIN [Concomitant]
     Indication: DRUG USE FOR UNKNOWN INDICATION
  9. MAGNESIUM HYDROXIDE TAB [Concomitant]
     Indication: CONSTIPATION
     Dosage: UNK
     Dates: start: 20080124
  10. EPRAZINONE HYDROCHLORIDE [Concomitant]
     Indication: DRUG USE FOR UNKNOWN INDICATION
     Dosage: UNK
     Dates: start: 20080327
  11. IODINE [Concomitant]
     Indication: DRUG USE FOR UNKNOWN INDICATION
     Dosage: UNK
     Dates: start: 20080522
  12. DIHYDROCODEINE BITARTRATE INJ [Concomitant]
     Indication: COUGH
     Dosage: UNK
     Dates: start: 20080703
  13. DIHYDROCODEINE BITARTRATE INJ [Concomitant]
     Indication: PAIN
  14. CARBOCYSTEINE [Concomitant]
     Indication: COUGH
     Dosage: UNK
     Dates: start: 20080214
  15. MUCODYNE [Concomitant]
     Indication: DRUG USE FOR UNKNOWN INDICATION
     Dosage: UNK
     Dates: start: 20080214
  16. CODEINE SUL TAB [Concomitant]
     Indication: DRUG USE FOR UNKNOWN INDICATION
     Dosage: UNK
     Dates: start: 20080703

REACTIONS (5)
  - CATARACT [None]
  - DISEASE PROGRESSION [None]
  - DYSPNOEA [None]
  - MALAISE [None]
  - VOCAL CORD PARALYSIS [None]
